FAERS Safety Report 8584812 (Version 5)
Quarter: 2013Q2

REPORT INFORMATION
  Report Type: Spontaneous
  Country: DK (occurrence: JP)
  Receive Date: 20120529
  Receipt Date: 20130618
  Transmission Date: 20140414
  Serious: Yes (Death)
  Sender: FDA-Public Use
  Company Number: JP-FRI-1000030817

PATIENT
  Age: 21 Year
  Sex: Female
  Weight: 41 kg

DRUGS (5)
  1. LEXAPRO [Suspect]
     Indication: DEPRESSION
     Dosage: 10 MG
     Route: 048
     Dates: start: 20120209
  2. MEDIPEACE [Suspect]
     Indication: SLEEP DISORDER
     Dosage: 1 MG
     Route: 048
     Dates: start: 20120222
  3. AMOBAN [Suspect]
     Indication: INITIAL INSOMNIA
     Dosage: 7.5 MG
     Route: 048
     Dates: start: 20120404
  4. MUCOSTA [Concomitant]
     Indication: GASTRITIS
     Dosage: 200 MG
     Route: 048
     Dates: start: 20120209, end: 20120222
  5. GOODMIN [Concomitant]
     Indication: INSOMNIA
     Dosage: 0.25 MG
     Route: 048
     Dates: start: 20120209, end: 20120403

REACTIONS (2)
  - Death [Fatal]
  - Depression [Fatal]
